FAERS Safety Report 6112183-6 (Version None)
Quarter: 2009Q1

REPORT INFORMATION
  Report Type: 
  Country: None (occurrence: None)
  Receive Date: 20090310
  Receipt Date: 20090213
  Transmission Date: 20090719
  Serious: Yes (Hospitalization)
  Sender: FDA-Public Use
  Company Number: 204192

PATIENT
  Age: 70 Year
  Sex: Male

DRUGS (16)
  1. LEUCOVORIN CALCIUM [Suspect]
     Indication: COLORECTAL CANCER STAGE I
     Dosage: INTRAVENOUS DRIP
     Route: 041
     Dates: start: 20061115
  2. FLUOROURACIL 50 MG/ML INJECTION (FLUOROURACIL) [Suspect]
     Indication: COLORECTAL CANCER STAGE I
     Dosage: INTRAVENOUS
     Route: 042
     Dates: start: 20061115, end: 20070202
  3. OXALIPLATIN FOR INJECTION (OXALIPLATIN0 [Suspect]
     Indication: COLORECTAL CANCER STAGE I
     Dosage: INTRAVENOUS DRIP
     Route: 041
     Dates: start: 20061129, end: 20070131
  4. (INVESTIGATIONAL DRUG) [Suspect]
     Indication: COLORECTAL CANCER STAGE I
     Dosage: 5 MG, TWICE DAILY, ORAL
     Route: 048
     Dates: start: 20061117, end: 20070131
  5. (BEVACIZUMAB) [Suspect]
     Indication: COLORECTAL CANCER STAGE I
     Dosage: INTRAVENOUS
     Route: 042
     Dates: start: 20061115
  6. CHLORPROMAZINE [Concomitant]
  7. (DOCUSATE) [Concomitant]
  8. FENTANYL-100 [Concomitant]
  9. (MORNIFLUMATE) [Concomitant]
  10. HYDROMORPHONE HCL 4MG/ML (HYDROMORPHONE) [Concomitant]
  11. (GRANISETRON) [Concomitant]
  12. DRONABINOL [Concomitant]
  13. (ESOMEPRAZOLE) [Concomitant]
  14. (MACROGOL) [Concomitant]
  15. PROMETHAZINE HYDROCHLORIDE (PROMETHAZINE) [Concomitant]
  16. (APREPITANT) [Concomitant]

REACTIONS (8)
  - CULTURE URINE POSITIVE [None]
  - CYSTITIS [None]
  - DEHYDRATION [None]
  - DISEASE PROGRESSION [None]
  - NEUTROPENIA [None]
  - PSEUDOMONAS INFECTION [None]
  - URINARY TRACT INFECTION [None]
  - URINE KETONE BODY PRESENT [None]
